FAERS Safety Report 19644428 (Version 6)
Quarter: 2021Q4

REPORT INFORMATION
  Report Type: Report from Study
  Country: None (occurrence: CH)
  Receive Date: 20210801
  Receipt Date: 20211011
  Transmission Date: 20220303
  Serious: Yes (Hospitalization, Other)
  Sender: FDA-Public Use
  Company Number: CH-ABBVIE-21K-151-4013939-00

PATIENT
  Age: 81 Year
  Sex: Male

DRUGS (5)
  1. CARBIDOPA\LEVODOPA [Suspect]
     Active Substance: CARBIDOPA\LEVODOPA
     Indication: Parkinson^s disease
     Route: 050
     Dates: start: 20151027
  2. CARBIDOPA\LEVODOPA [Suspect]
     Active Substance: CARBIDOPA\LEVODOPA
     Dosage: MD: 4.0 ML, CRD: 2.7 ML/H (AFTER 3 PM 3 ML/H), CRN: 2.2 ML/H, ED: 1.8 ML
     Route: 050
     Dates: start: 20210413, end: 20210506
  3. CARBIDOPA\LEVODOPA [Suspect]
     Active Substance: CARBIDOPA\LEVODOPA
     Dosage: MD: 4.0 ML, CRD: 2.7 ML/H (AFTER 3 PM 3 ML/H), CRN: 2.2 ML/H, ED: 1.8 ML
     Route: 050
     Dates: start: 20210506, end: 20210529
  4. CARBIDOPA\LEVODOPA [Suspect]
     Active Substance: CARBIDOPA\LEVODOPA
     Dosage: MD: 4.0 ML, CRD: 2.7 ML/H (AFTER 3 PM 3 ML/H), CRN: 2.2 ML/H, ED: 1.8 ML
     Route: 050
     Dates: start: 20210529, end: 2021
  5. CARBIDOPA\LEVODOPA [Suspect]
     Active Substance: CARBIDOPA\LEVODOPA
     Dosage: MD: 4.0 ML, CRD: 2.7 ML/H (AFTER 3 PM 3 ML/H), CRN: 2.2 ML/H, ED: 1.8 ML
     Route: 050
     Dates: start: 202107

REACTIONS (7)
  - Urinary tract infection [Recovered/Resolved]
  - Urinary retention [Recovered/Resolved]
  - Pneumonia aspiration [Recovered/Resolved]
  - Sepsis [Recovered/Resolved]
  - Eating disorder [Not Recovered/Not Resolved]
  - Device occlusion [Recovered/Resolved]
  - Device connection issue [Recovered/Resolved]

NARRATIVE: CASE EVENT DATE: 20210726
